FAERS Safety Report 6216064-9 (Version None)
Quarter: 2009Q2

REPORT INFORMATION
  Report Type: 
  Country: None (occurrence: None)
  Receive Date: 20090605
  Receipt Date: 20090601
  Transmission Date: 20091009
  Serious: Yes (Hospitalization, Other)
  Sender: FDA-Public Use
  Company Number: US-JNJFOC-20090600886

PATIENT
  Sex: Female
  Weight: 83.92 kg

DRUGS (2)
  1. RISPERDAL [Suspect]
     Indication: SCHIZOPHRENIA
     Route: 048
  2. LITHIUM [Suspect]
     Indication: SCHIZOPHRENIA
     Route: 065

REACTIONS (5)
  - FREEZING PHENOMENON [None]
  - HYPERHIDROSIS [None]
  - SENSATION OF HEAVINESS [None]
  - SOMNOLENCE [None]
  - THIRST [None]
